FAERS Safety Report 9322236 (Version 2)
Quarter: 2013Q4

REPORT INFORMATION
  Report Type: Spontaneous
  Country: US (occurrence: US)
  Receive Date: 20130531
  Receipt Date: 20131114
  Transmission Date: 20140711
  Serious: Yes (Other)
  Sender: FDA-Public Use
  Company Number: US-GLAXOSMITHKLINE-A1025110A

PATIENT
  Sex: Female
  Weight: 100.5 kg

DRUGS (4)
  1. TYKERB [Suspect]
     Indication: BREAST CANCER
     Dosage: 1000MG PER DAY
     Route: 048
  2. HYDROCHLOROTHIAZIDE [Concomitant]
  3. HYDROCODONE APAP [Concomitant]
  4. METHYLPHENIDATE [Concomitant]

REACTIONS (7)
  - Central nervous system lesion [Unknown]
  - Dry mouth [Unknown]
  - Tongue dry [Unknown]
  - Dry throat [Unknown]
  - Throat irritation [Unknown]
  - Lip dry [Unknown]
  - Incontinence [Unknown]
